FAERS Safety Report 5045357-6 (Version None)
Quarter: 2006Q3

REPORT INFORMATION
  Report Type: 
  Country: None (occurrence: None)
  Receive Date: 20060707
  Receipt Date: 20060214
  Transmission Date: 20061208
  Serious: No
  Sender: FDA-Public Use
  Company Number: US-GLAXOSMITHKLINE-A0593672A

PATIENT
  Sex: Male

DRUGS (2)
  1. LOTRONEX [Suspect]
     Indication: DRUG USE FOR UNKNOWN INDICATION
     Dosage: .5MG ALTERNATE DAYS
     Route: 048
     Dates: start: 20060101
  2. ASPIRIN [Concomitant]

REACTIONS (1)
  - RETINAL ARTERY OCCLUSION [None]
